FAERS Safety Report 11195785 (Version 1)
Quarter: 2015Q2

REPORT INFORMATION
  Report Type: Spontaneous
  Country: US (occurrence: None)
  Receive Date: 20150615
  Receipt Date: 20150615
  Transmission Date: 20150821
  Serious: No
  Sender: FDA-Public Use
  Company Number: None

PATIENT
  Age: 42 Year
  Sex: Female
  Weight: 56.7 kg

DRUGS (1)
  1. GASTROGRAFIN [Suspect]
     Active Substance: DIATRIZOATE MEGLUMINE\DIATRIZOATE SODIUM
     Indication: SCAN WITH CONTRAST
     Dosage: LARGE CUP OF LIQUID
     Route: 048
     Dates: start: 20150608

REACTIONS (3)
  - Rash pruritic [None]
  - Rash erythematous [None]
  - Heart rate increased [None]

NARRATIVE: CASE EVENT DATE: 20150609
